FAERS Safety Report 25791409 (Version 2)
Quarter: 2025Q4

REPORT INFORMATION
  Report Type: Report from Study
  Country: JP (occurrence: JP)
  Receive Date: 20250911
  Receipt Date: 20251007
  Transmission Date: 20260117
  Serious: Yes (Death)
  Sender: GILEAD
  Company Number: JP-GILEAD-2025-0727713

PATIENT
  Age: 79 Year
  Sex: Male

DRUGS (2)
  1. REMDESIVIR [Suspect]
     Active Substance: REMDESIVIR
     Indication: COVID-19
     Dosage: UNK
     Route: 065
  2. MOLNUPIRAVIR [Concomitant]
     Active Substance: MOLNUPIRAVIR

REACTIONS (2)
  - COVID-19 [Fatal]
  - Product use issue [Unknown]
